FAERS Safety Report 21042672 (Version 3)
Quarter: 2022Q4

REPORT INFORMATION
  Report Type: Spontaneous
  Country: CZ (occurrence: CZ)
  Receive Date: 20220705
  Receipt Date: 20221001
  Transmission Date: 20230113
  Serious: Yes (Hospitalization, Other)
  Sender: FDA-Public Use
  Company Number: CZ-SUN PHARMACEUTICAL INDUSTRIES LTD-2022RR-342978

PATIENT
  Age: 68 Year
  Sex: Male

DRUGS (5)
  1. RISPERIDONE [Interacting]
     Active Substance: RISPERIDONE
     Indication: Major depression
     Dosage: 1 MILLIGRAM, BID, 1-0-1
     Route: 065
  2. PAROXETINE [Interacting]
     Active Substance: PAROXETINE
     Indication: Major depression
     Dosage: 20 MILLIGRAM, BID, 1-0-1
     Route: 065
  3. ASPIRIN [Concomitant]
     Active Substance: ASPIRIN
     Indication: Major depression
     Dosage: 100 MILLIGRAM, DAILY, 0-1-0
     Route: 065
  4. PERINDOPRIL [Concomitant]
     Active Substance: PERINDOPRIL
     Indication: Major depression
     Dosage: 4 MILLIGRAM, BID, 1-0-1
     Route: 065
  5. PREGABALIN [Concomitant]
     Active Substance: PREGABALIN
     Indication: Major depression
     Dosage: 150 MILLIGRAM, TID, 1-1-1
     Route: 065

REACTIONS (3)
  - Drug interaction [Unknown]
  - Extrapyramidal disorder [Unknown]
  - Constipation [Unknown]
